FAERS Safety Report 6582514-1 (Version None)
Quarter: 2010Q1

REPORT INFORMATION
  Report Type: 
  Country: None (occurrence: None)
  Receive Date: 20100216
  Receipt Date: 20100209
  Transmission Date: 20100710
  Serious: Yes (Hospitalization)
  Sender: FDA-Public Use
  Company Number: JP-BAYER-201010423BYL

PATIENT
  Age: 64 Year
  Sex: Male

DRUGS (8)
  1. NEXAVAR [Suspect]
     Indication: RENAL CELL CARCINOMA
     Dosage: TOTAL DAILY DOSE: 800 MG  UNIT DOSE: 200 MG
     Route: 048
     Dates: start: 20080502, end: 20091225
  2. DOPS [Concomitant]
     Route: 048
  3. FP-OD [Concomitant]
     Route: 048
  4. EC-DOPARL [Concomitant]
     Route: 048
  5. PARLODEL [Concomitant]
     Route: 048
  6. CERCINE [Concomitant]
     Route: 048
  7. MAGMITT [Concomitant]
     Indication: CONSTIPATION PROPHYLAXIS
     Route: 048
  8. PURSENNID [Concomitant]
     Indication: CONSTIPATION PROPHYLAXIS
     Route: 048

REACTIONS (1)
  - HERPES ZOSTER [None]
